FAERS Safety Report 6212595-6 (Version None)
Quarter: 2009Q2

REPORT INFORMATION
  Report Type: 
  Country: None (occurrence: None)
  Receive Date: 20090602
  Receipt Date: 20090602
  Transmission Date: 20091009
  Serious: Yes (Hospitalization)
  Sender: FDA-Public Use
  Company Number: None

PATIENT
  Sex: Female
  Weight: 67.1324 kg

DRUGS (5)
  1. PENTASA [Suspect]
     Indication: GASTROINTESTINAL EROSION
     Dosage: 1,000 MG THREE TIMES A DAY 047
     Dates: start: 20090331, end: 20090426
  2. PENTASA [Suspect]
     Indication: LARGE INTESTINAL ULCER
     Dosage: 1,000 MG THREE TIMES A DAY 047
     Dates: start: 20090331, end: 20090426
  3. HYDROCHLOROTHIAZIDE [Concomitant]
  4. FERROUS SULFATE TAB [Concomitant]
  5. COLACE [Concomitant]

REACTIONS (6)
  - BACK PAIN [None]
  - FATIGUE [None]
  - HEADACHE [None]
  - MYOCARDITIS [None]
  - NECK PAIN [None]
  - PYREXIA [None]
